FAERS Safety Report 4777937-7 (Version None)
Quarter: 2005Q3

REPORT INFORMATION
  Report Type: 
  Country: None (occurrence: None)
  Receive Date: 20050921
  Receipt Date: 20050905
  Transmission Date: 20060218
  Serious: Yes (Disabling, Other)
  Sender: FDA-Public Use
  Company Number: GBS050918349

PATIENT
  Age: 50 Year
  Sex: Female
  Weight: 71 kg

DRUGS (12)
  1. CYMBALTA [Suspect]
     Indication: DEPRESSION
     Dosage: 20 MG
     Dates: start: 20050513, end: 20050513
  2. DANTROLENE SODIUM [Concomitant]
  3. FLUTICASONE PROPIONATE [Concomitant]
  4. PROPIVERINE HYDROCHLORIDE [Concomitant]
  5. PARACETAMOL [Concomitant]
  6. LISINOPRIL [Concomitant]
  7. SIMVASTATIN [Concomitant]
  8. DIAZEPAM [Concomitant]
  9. ISPAGHULA HUSK [Concomitant]
  10. FLUCONAZOLE [Concomitant]
  11. FOLIC ACID [Concomitant]
  12. PREMIQUE [Concomitant]

REACTIONS (3)
  - MUSCLE SPASMS [None]
  - NAUSEA [None]
  - VOMITING [None]
